FAERS Safety Report 10537989 (Version 1)
Quarter: 2014Q4

REPORT INFORMATION
  Report Type: Spontaneous
  Country: US (occurrence: US)
  Receive Date: 20141023
  Receipt Date: 20141023
  Transmission Date: 20150529
  Serious: No
  Sender: FDA-Public Use
  Company Number: US-ELI_LILLY_AND_COMPANY-US201410000884

PATIENT
  Age: 63 Year
  Sex: Female

DRUGS (1)
  1. CYMBALTA [Suspect]
     Active Substance: DULOXETINE HYDROCHLORIDE
     Indication: PAIN
     Dosage: 60 MG, QD
     Route: 065
     Dates: end: 20140919

REACTIONS (11)
  - Fatigue [Unknown]
  - Dyspnoea [Unknown]
  - Drug withdrawal syndrome [Unknown]
  - Dyskinesia [Unknown]
  - Influenza like illness [Unknown]
  - Hot flush [Unknown]
  - Speech disorder [Unknown]
  - Paraesthesia [Unknown]
  - Insomnia [Unknown]
  - Pain [Unknown]
  - Chills [Unknown]
